FAERS Safety Report 13934026 (Version 3)
Quarter: 2017Q4

REPORT INFORMATION
  Report Type: Spontaneous
  Country: GB (occurrence: GB)
  Receive Date: 20170904
  Receipt Date: 20171201
  Transmission Date: 20180320
  Serious: Yes (Hospitalization)
  Sender: FDA-Public Use
  Company Number: GB-NOVOPROD-561022

PATIENT
  Age: 46 Year
  Sex: Female
  Weight: 75.5 kg

DRUGS (1)
  1. NOVORAPID [Suspect]
     Active Substance: INSULIN ASPART
     Indication: TYPE 1 DIABETES MELLITUS
     Dosage: UNK
     Route: 058

REACTIONS (4)
  - Wrong technique in product usage process [Unknown]
  - Product container issue [Unknown]
  - Diabetic ketoacidosis [Recovered/Resolved]
  - Product leakage [Unknown]

NARRATIVE: CASE EVENT DATE: 20170824
